FAERS Safety Report 4597172-5 (Version None)
Quarter: 2005Q1

REPORT INFORMATION
  Report Type: 
  Country: None (occurrence: None)
  Receive Date: 20050223
  Receipt Date: 20050207
  Transmission Date: 20050727
  Serious: Yes (Other)
  Sender: FDA-Public Use
  Company Number: 601830

PATIENT
  Age: 55 Year
  Sex: Female

DRUGS (1)
  1. TISSEEL VH KIT [Suspect]
     Indication: PLASTIC SURGERY TO THE FACE
     Dosage: 4 ML; ONCE; TOPICAL
     Route: 061
     Dates: start: 20050128, end: 20050128

REACTIONS (3)
  - FACIAL PAIN [None]
  - POSTOPERATIVE INFECTION [None]
  - SWELLING FACE [None]
